FAERS Safety Report 22767053 (Version 4)
Quarter: 2023Q4

REPORT INFORMATION
  Report Type: Spontaneous
  Country: CN (occurrence: CN)
  Receive Date: 20230731
  Receipt Date: 20231113
  Transmission Date: 20240110
  Serious: Yes (Death, Life-Threatening, Hospitalization)
  Sender: FDA-Public Use
  Company Number: CN-PFIZER INC-PV202300130014

PATIENT
  Age: 81 Year
  Sex: Female
  Weight: 45 kg

DRUGS (4)
  1. CYTARABINE [Suspect]
     Active Substance: CYTARABINE
     Indication: Chemotherapy
     Dosage: 0.025 G, 1X/DAY
     Route: 058
     Dates: start: 20230502, end: 20230512
  2. CYTARABINE [Suspect]
     Active Substance: CYTARABINE
     Dosage: 0.025  G, 1X/DAY
     Route: 058
     Dates: start: 20230605, end: 20230611
  3. SODIUM CHLORIDE [Concomitant]
     Active Substance: SODIUM CHLORIDE
     Indication: Vehicle solution use
     Dosage: 1 ML, 1X/DAY
     Route: 058
     Dates: start: 20230502, end: 20230512
  4. SODIUM CHLORIDE [Concomitant]
     Active Substance: SODIUM CHLORIDE
     Dosage: 1 ML, 1X/DAY
     Route: 058
     Dates: start: 20230605, end: 20230611

REACTIONS (6)
  - Neoplasm progression [Fatal]
  - White blood cell count decreased [Fatal]
  - Granulocyte count decreased [Fatal]
  - Platelet count decreased [Fatal]
  - Blood creatinine increased [Fatal]
  - Acute kidney injury [Fatal]

NARRATIVE: CASE EVENT DATE: 20230607
